FAERS Safety Report 11472194 (Version 1)
Quarter: 2015Q3

REPORT INFORMATION
  Report Type: Spontaneous
  Country: US (occurrence: US)
  Receive Date: 20150908
  Receipt Date: 20150908
  Transmission Date: 20151125
  Serious: No
  Sender: FDA-Public Use
  Company Number: US-SA-2015SA067109

PATIENT
  Age: 75 Year
  Sex: Male

DRUGS (5)
  1. TOUJEO [Suspect]
     Active Substance: INSULIN GLARGINE
     Dosage: DOSE:110 UNIT(S)
     Route: 065
     Dates: start: 20150514
  2. SOLOSTAR [Concomitant]
     Active Substance: DEVICE
  3. LANTUS [Concomitant]
     Active Substance: INSULIN GLARGINE
     Dosage: DOSE:140 UNIT(S)
  4. VICTOZA [Concomitant]
     Active Substance: LIRAGLUTIDE
  5. LANTUS [Concomitant]
     Active Substance: INSULIN GLARGINE
     Dosage: DOSE:110 UNIT(S)

REACTIONS (2)
  - Unevaluable event [Unknown]
  - Blood glucose increased [Unknown]
